FAERS Safety Report 19964463 (Version 1)
Quarter: 2021Q4

REPORT INFORMATION
  Report Type: Spontaneous
  Country: US (occurrence: US)
  Receive Date: 20211014
  Receipt Date: 20211014
  Transmission Date: 20220303
  Serious: Yes (Other)
  Sender: FDA-Public Use
  Company Number: None

PATIENT
  Sex: Male

DRUGS (8)
  1. REPATHA [Suspect]
     Active Substance: EVOLOCUMAB
     Indication: Hypercholesterolaemia
     Route: 058
     Dates: start: 20200219
  2. AMOXICILLIN [Concomitant]
     Active Substance: AMOXICILLIN
  3. ASPIRIN [Concomitant]
     Active Substance: ASPIRIN
  4. CLOBETASOL SOL [Concomitant]
  5. ISOSORBIDE MONONITRATE [Concomitant]
     Active Substance: ISOSORBIDE MONONITRATE
  6. METOPROLOL TARTRATE [Concomitant]
     Active Substance: METOPROLOL TARTRATE
  7. RANOLAZINE [Concomitant]
     Active Substance: RANOLAZINE
  8. TAMSULIN [Concomitant]

REACTIONS (10)
  - Prostate cancer [None]
  - Chronic obstructive pulmonary disease [None]
  - Arteriosclerosis coronary artery [None]
  - Gastrooesophageal reflux disease [None]
  - Hyperlipidaemia [None]
  - Osteoarthritis [None]
  - Skin disorder [None]
  - Vitamin D deficiency [None]
  - Essential hypertension [None]
  - Gastrointestinal haemorrhage [None]
